FAERS Safety Report 21521818 (Version 4)
Quarter: 2022Q4

REPORT INFORMATION
  Report Type: Report from Study
  Country: CN (occurrence: CN)
  Receive Date: 20221028
  Receipt Date: 20221207
  Transmission Date: 20230112
  Serious: Yes (Hospitalization)
  Sender: FDA-Public Use
  Company Number: CN-JNJFOC-20221055816

PATIENT
  Age: 66 Year
  Sex: Female
  Weight: 45 kg

DRUGS (34)
  1. AMIVANTAMAB [Suspect]
     Active Substance: AMIVANTAMAB
     Indication: Non-small cell lung cancer
     Route: 042
     Dates: start: 20220315, end: 20220921
  2. PEMETREXED [Suspect]
     Active Substance: PEMETREXED
     Indication: Non-small cell lung cancer
     Route: 042
     Dates: end: 20220921
  3. PEMETREXED [Suspect]
     Active Substance: PEMETREXED
     Dosage: D1 CHEMOTHERAPY
     Route: 042
     Dates: start: 20221109
  4. CARBOPLATIN [Concomitant]
     Active Substance: CARBOPLATIN
     Indication: Non-small cell lung cancer
     Route: 042
     Dates: start: 20220315, end: 20220518
  5. DI YU SHENG BAI [Concomitant]
     Indication: Prophylaxis
     Route: 048
     Dates: start: 20220408
  6. HUANG LIAN SHANG QING [Concomitant]
     Indication: Constipation
     Dosage: L
     Route: 048
     Dates: start: 20220506
  7. CHLORTETRACYCLINE HYDROCHLORIDE [Concomitant]
     Active Substance: CHLORTETRACYCLINE HYDROCHLORIDE
     Indication: Rash
     Route: 061
     Dates: start: 20220609
  8. COMPOUND DEXAMETHASONE ACETATE [CAMPHOR;DEXAMETHASONE ACETATE;MENTHOL] [Concomitant]
     Indication: Rash
     Route: 061
     Dates: start: 20220609, end: 20221025
  9. FUSIDIC ACID [Concomitant]
     Active Substance: FUSIDIC ACID
     Indication: Paronychia
     Route: 061
     Dates: start: 20220629
  10. FLURBIPROFEN [Concomitant]
     Active Substance: FLURBIPROFEN
     Indication: Chest pain
     Route: 050
     Dates: start: 20220921, end: 20221028
  11. ONDANSETRON HYDROCHLORIDE [Concomitant]
     Active Substance: ONDANSETRON HYDROCHLORIDE
     Indication: Prophylaxis of nausea and vomiting
     Route: 048
     Dates: start: 20221003, end: 20221008
  12. MUSK [Concomitant]
     Indication: Constipation
     Route: 061
  13. FLUOROMETHOLONE [Concomitant]
     Active Substance: FLUOROMETHOLONE
     Indication: Pterygium
     Route: 050
     Dates: start: 20220831, end: 20221012
  14. YI QI YANG XUE [ANGELICA SINENSIS ROOT;AQUILARIA SINENSIS WOOD;CORNUS [Concomitant]
     Indication: Nutritional supplementation
     Route: 048
     Dates: start: 20220921
  15. LEUCOGEN [Concomitant]
     Active Substance: LEUCOGEN
     Indication: Prophylaxis
     Route: 048
     Dates: start: 20221003, end: 20221008
  16. LEUCOGEN [Concomitant]
     Active Substance: LEUCOGEN
     Route: 048
     Dates: start: 20221011, end: 20221020
  17. LEUCOGEN [Concomitant]
     Active Substance: LEUCOGEN
     Route: 048
     Dates: start: 20221025, end: 20221103
  18. TRAMADOL [Concomitant]
     Active Substance: TRAMADOL
     Indication: Chest pain
     Route: 048
     Dates: start: 20221003, end: 20221008
  19. VITAMIN B6 [Concomitant]
     Active Substance: PYRIDOXINE HYDROCHLORIDE
     Indication: Antiemetic supportive care
     Route: 048
     Dates: start: 20221003, end: 20221010
  20. AMINO ACIDS [AMINO ACIDS NOS] [Concomitant]
     Indication: Decreased appetite
     Route: 042
     Dates: start: 20221011, end: 20221015
  21. RABEPRAZOLE SODIUM [Concomitant]
     Active Substance: RABEPRAZOLE SODIUM
     Indication: Prophylaxis
     Route: 048
     Dates: start: 20221011, end: 20221020
  22. FAT EMULSION NOS [Concomitant]
     Active Substance: EGG PHOSPHOLIPIDS\SAFFLOWER OIL\SOYBEAN OIL
     Indication: Decreased appetite
     Route: 042
     Dates: start: 20221011, end: 20221025
  23. AMMONIUM GLYCYRRHIZATE\CYSTEINE HYDROCHLORIDE\GLYCINE [Concomitant]
     Active Substance: AMMONIUM GLYCYRRHIZATE\CYSTEINE HYDROCHLORIDE\GLYCINE
     Indication: Prophylaxis
     Route: 048
     Dates: start: 20221011, end: 20221025
  24. NITROFURAZON [Concomitant]
     Indication: Oedema peripheral
     Route: 061
     Dates: start: 20221012, end: 20221029
  25. TRIAMCINOLONE ACETONIDE ACETATE AND MICONAZOLE NITRATE AND NEOMYCIN SU [Concomitant]
     Indication: Oedema peripheral
     Dosage: DOSAGE NOT PROVIDED
     Route: 061
     Dates: start: 20221012
  26. DESLORATADINE [Concomitant]
     Active Substance: DESLORATADINE
     Indication: Rash
     Route: 048
     Dates: start: 20221012, end: 20221025
  27. POVIDONE-IODINE [Concomitant]
     Active Substance: POVIDONE-IODINE
     Indication: Rash
     Dosage: DOSAGE NOT PROVIDED
     Route: 061
     Dates: start: 20221013
  28. POVIDONE-IODINE [Concomitant]
     Active Substance: POVIDONE-IODINE
     Indication: Oedema peripheral
  29. POTASSIUM CHLORIDE [Concomitant]
     Active Substance: POTASSIUM CHLORIDE
     Indication: Hypokalaemia
     Route: 048
     Dates: start: 20221017, end: 20221018
  30. POTASSIUM CHLORIDE [Concomitant]
     Active Substance: POTASSIUM CHLORIDE
     Route: 042
     Dates: start: 20221017, end: 20221025
  31. MEGESTROL ACETATE [Concomitant]
     Active Substance: MEGESTROL ACETATE
     Indication: Decreased appetite
     Route: 048
     Dates: start: 20221025, end: 20221103
  32. FERRIC POLYSACCHARIDE COMPLEX [Concomitant]
     Active Substance: FERRIC POLYSACCHARIDE COMPLEX
     Indication: Anaemia
     Route: 048
     Dates: start: 20221025, end: 20221103
  33. YI XUE SHENG [Concomitant]
     Indication: Anaemia
     Route: 048
     Dates: start: 20221025, end: 20221103
  34. YUN NAN BAI YAO [ACONITUM KUSNEZOFFII ROOT;HERBAL NOS] [Concomitant]
     Indication: Paronychia
     Route: 061
     Dates: start: 20220801

REACTIONS (1)
  - Delirium [Recovered/Resolved]

NARRATIVE: CASE EVENT DATE: 20221019
